FAERS Safety Report 8495135-0 (Version None)
Quarter: 2012Q3

REPORT INFORMATION
  Report Type: 
  Country: None (occurrence: None)
  Receive Date: 20120709
  Receipt Date: 20120628
  Transmission Date: 20120928
  Serious: Yes (Hospitalization)
  Sender: FDA-Public Use
  Company Number: US-SANOFI-AVENTIS-2012SA047099

PATIENT
  Age: 59 Year
  Sex: Female
  Weight: 46.7 kg

DRUGS (14)
  1. IBUPROFEN (ADVIL) [Concomitant]
  2. GLIMEPIRIDE [Concomitant]
  3. ENOXAPARIN [Concomitant]
  4. METFORMIN HCL [Concomitant]
  5. ROCEPHIN [Concomitant]
  6. RIFAPENTINE [Suspect]
     Route: 065
     Dates: end: 20120420
  7. RIFAPENTINE [Suspect]
     Route: 065
     Dates: start: 20120401
  8. PROTONIX [Concomitant]
  9. ALBUTEROL SULFATE [Concomitant]
  10. AZITHROMYCIN [Concomitant]
  11. MEROPENEM [Concomitant]
  12. LEVEMIR [Concomitant]
  13. LOVASTATIN [Concomitant]
  14. ASPIRIN [Concomitant]

REACTIONS (1)
  - LEUKOCYTOSIS [None]
